FAERS Safety Report 17069753 (Version 1)
Quarter: 2019Q4

REPORT INFORMATION
  Report Type: Report from Study
  Country: None (occurrence: US)
  Receive Date: 20191125
  Receipt Date: 20191125
  Transmission Date: 20200122
  Serious: Yes (Hospitalization, Other)
  Sender: FDA-Public Use
  Company Number: US-ABBVIE-19K-163-2932029-00

PATIENT
  Sex: Female

DRUGS (3)
  1. HUMIRA [Suspect]
     Active Substance: ADALIMUMAB
     Indication: CROHN^S DISEASE
     Dosage: DAY 1
     Route: 058
     Dates: start: 20190830, end: 20190830
  2. HUMIRA [Suspect]
     Active Substance: ADALIMUMAB
     Dosage: DAY 15
     Route: 058
     Dates: start: 20190913, end: 20190913
  3. HUMIRA [Suspect]
     Active Substance: ADALIMUMAB
     Indication: CROHN^S DISEASE
     Route: 058
     Dates: start: 20190927

REACTIONS (13)
  - Small intestinal stenosis [Unknown]
  - Pyrexia [Unknown]
  - Fatigue [Unknown]
  - Hot flush [Unknown]
  - Drug ineffective [Unknown]
  - Visual impairment [Recovered/Resolved]
  - Night sweats [Recovering/Resolving]
  - Gastrointestinal obstruction [Unknown]
  - Abnormal faeces [Not Recovered/Not Resolved]
  - Chills [Unknown]
  - Nausea [Unknown]
  - Discoloured vomit [Unknown]
  - Gastrointestinal motility disorder [Not Recovered/Not Resolved]

NARRATIVE: CASE EVENT DATE: 2019
